FAERS Safety Report 8440571-1 (Version None)
Quarter: 2012Q2

REPORT INFORMATION
  Report Type: 
  Country: None (occurrence: None)
  Receive Date: 20120323
  Receipt Date: 20110624
  Transmission Date: 20120825
  Serious: Yes (Hospitalization)
  Sender: FDA-Public Use
  Company Number: 163-21880-11063526

PATIENT
  Age: 70 Year
  Sex: Male

DRUGS (4)
  1. ASPIRIN [Concomitant]
  2. ACYCLOVIR (ACICLOVIR) (UNKNOWN) [Concomitant]
  3. NEURONTIN [Concomitant]
  4. REVLIMID [Suspect]
     Indication: MULTIPLE MYELOMA
     Dosage: 10 MG, DAILY X 21 DAYS, PO
     Route: 048
     Dates: start: 20100924

REACTIONS (2)
  - VIRAL INFECTION [None]
  - FULL BLOOD COUNT DECREASED [None]
